FAERS Safety Report 20933490 (Version 1)
Quarter: 2022Q2

REPORT INFORMATION
  Report Type: Report from Study
  Country: US (occurrence: US)
  Receive Date: 20220608
  Receipt Date: 20220608
  Transmission Date: 20220720
  Serious: Yes (Other)
  Sender: FDA-Public Use
  Company Number: US-ALLERGAN-2218197US

PATIENT
  Sex: Male

DRUGS (2)
  1. ATOGEPANT [Suspect]
     Active Substance: ATOGEPANT
     Indication: Product used for unknown indication
     Dosage: UNK
  2. UBRELVY [Concomitant]
     Active Substance: UBROGEPANT

REACTIONS (3)
  - Blindness [Unknown]
  - Feeling abnormal [Unknown]
  - Headache [Unknown]
